FAERS Safety Report 12572848 (Version 1)
Quarter: 2016Q3

REPORT INFORMATION
  Report Type: Spontaneous
  Country: DE (occurrence: DE)
  Receive Date: 20160720
  Receipt Date: 20160720
  Transmission Date: 20161109
  Serious: Yes (Disabling, Other)
  Sender: FDA-Public Use
  Company Number: DE-SUN PHARMACEUTICAL INDUSTRIES LTD-2016RR-120401

PATIENT
  Sex: Female

DRUGS (1)
  1. CLARITHROMYCIN BASICS 250MG FILMTABLETTEN [Suspect]
     Active Substance: CLARITHROMYCIN
     Indication: PRODUCT USED FOR UNKNOWN INDICATION
     Route: 065

REACTIONS (4)
  - Dysgeusia [Unknown]
  - Impaired quality of life [Unknown]
  - Ageusia [Unknown]
  - Anosmia [Unknown]
